FAERS Safety Report 8986382 (Version 2)
Quarter: 2013Q1

REPORT INFORMATION
  Report Type: Spontaneous
  Country: US (occurrence: None)
  Receive Date: 20121217
  Receipt Date: 20130107
  Transmission Date: 20140127
  Serious: Yes (Death)
  Sender: FDA-Public Use
  Company Number: LMI-2012-00425

PATIENT
  Age: 57 Year
  Sex: Male
  Weight: 139.71 kg

DRUGS (9)
  1. DEFINITY [Suspect]
     Indication: ECHOCARDIOGRAM
     Dosage: 1.5 ML OF DEFINITY DILUTED WITH 8 ML NORMAL SALINE
     Route: 042
     Dates: start: 20121204, end: 20121204
  2. ALBUTEROL (SALBUTAMOL) [Concomitant]
  3. DILTIAZEM [Concomitant]
  4. ALLEGRA [Concomitant]
  5. INDOMETHACIN (INDOMETACIN) [Concomitant]
  6. LASIX (FUROSEMIDE) [Concomitant]
  7. METFORMIN [Concomitant]
  8. NEXIUM (ESOMEPRAZOLE MAGNESIUM) [Concomitant]
  9. PRAVASTATIN [Concomitant]

REACTIONS (3)
  - Anaphylactic shock [None]
  - Post procedural complication [None]
  - Pulse absent [None]
